FAERS Safety Report 4302137-4 (Version None)
Quarter: 2004Q1

REPORT INFORMATION
  Report Type: 
  Country: None (occurrence: None)
  Receive Date: 20040220
  Receipt Date: 20040210
  Transmission Date: 20041129
  Serious: Yes (Hospitalization)
  Sender: FDA-Public Use
  Company Number: US066534

PATIENT
  Age: 47 Year
  Sex: Female

DRUGS (2)
  1. ENBREL [Suspect]
     Indication: RHEUMATOID ARTHRITIS
     Dosage: 25 MG, 2 IN 1 WEEKS, SC
     Route: 058
     Dates: start: 19990617, end: 20031110
  2. NAPROXEN [Concomitant]

REACTIONS (3)
  - LEUKOCYTOCLASTIC VASCULITIS [None]
  - PSORIASIS [None]
  - STEVENS-JOHNSON SYNDROME [None]
